FAERS Safety Report 23648942 (Version 1)
Quarter: 2024Q1

REPORT INFORMATION
  Report Type: Spontaneous
  Country: US (occurrence: None)
  Receive Date: 20240318
  Receipt Date: 20240318
  Transmission Date: 20240410
  Serious: No
  Sender: FDA-Public Use
  Company Number: None

PATIENT
  Age: 60 Year
  Sex: Female
  Weight: 87.75 kg

DRUGS (2)
  1. DUPIXENT [Suspect]
     Active Substance: DUPILUMAB
     Indication: Nasal polyps
     Dosage: OTHER FREQUENCY : Q 14 DAYS;?
     Route: 058
     Dates: start: 20231206, end: 20240313
  2. SYMBICORT [Concomitant]
     Active Substance: BUDESONIDE\FORMOTEROL FUMARATE DIHYDRATE
     Dates: start: 20231221

REACTIONS (6)
  - Hypoaesthesia [None]
  - Arthralgia [None]
  - Pain in extremity [None]
  - Dysstasia [None]
  - Weight increased [None]
  - Sneezing [None]

NARRATIVE: CASE EVENT DATE: 20240313
